FAERS Safety Report 6530987-2 (Version None)
Quarter: 2010Q1

REPORT INFORMATION
  Report Type: 
  Country: None (occurrence: None)
  Receive Date: 20100108
  Receipt Date: 20090810
  Transmission Date: 20100710
  Serious: No
  Sender: FDA-Public Use
  Company Number: A0801349A

PATIENT
  Age: 46 Year
  Sex: Male

DRUGS (4)
  1. LOVAZA [Suspect]
     Indication: SUPPLEMENTATION THERAPY
     Dosage: 2CAP TWICE PER DAY
     Route: 048
     Dates: start: 20090601
  2. VYTORIN [Concomitant]
  3. FOLIC ACID [Concomitant]
  4. AVAPRO [Concomitant]

REACTIONS (2)
  - ALOPECIA [None]
  - FEELING HOT [None]
